FAERS Safety Report 7668043-2 (Version None)
Quarter: 2011Q3

REPORT INFORMATION
  Report Type: 
  Country: None (occurrence: None)
  Receive Date: 20110808
  Receipt Date: 20110803
  Transmission Date: 20111222
  Serious: No
  Sender: FDA-Public Use
  Company Number: US-PFIZER INC-2011177634

PATIENT
  Age: 15 Year
  Sex: Female

DRUGS (1)
  1. ZOSYN [Suspect]
     Dosage: UNK

REACTIONS (1)
  - URTICARIA [None]
